FAERS Safety Report 10794129 (Version 1)
Quarter: 2015Q1

REPORT INFORMATION
  Report Type: Spontaneous
  Country: RU (occurrence: RU)
  Receive Date: 20150213
  Receipt Date: 20150213
  Transmission Date: 20150721
  Serious: Yes (Other)
  Sender: FDA-Public Use
  Company Number: RU-PFIZER INC-2015056142

PATIENT
  Age: 70 Year
  Sex: Male

DRUGS (1)
  1. CELEBREX [Suspect]
     Active Substance: CELECOXIB
     Indication: PERIARTHRITIS
     Dosage: 200 MG, 1X/DAY
     Route: 048

REACTIONS (1)
  - Urinary retention [Recovered/Resolved]
